FAERS Safety Report 14304898 (Version 1)
Quarter: 2017Q4

REPORT INFORMATION
  Report Type: Spontaneous
  Country: JP (occurrence: JP)
  Receive Date: 20171219
  Receipt Date: 20171219
  Transmission Date: 20180321
  Serious: Yes (Hospitalization)
  Sender: FDA-Public Use
  Company Number: JP-OTSUKA-03100-JPN-06-0508

PATIENT
  Age: 29 Year
  Sex: Male

DRUGS (19)
  1. ROHYPNOL [Concomitant]
     Active Substance: FLUNITRAZEPAM
     Dosage: 1 MG, QD
     Route: 048
     Dates: start: 20050623, end: 20060905
  2. EURODIN [Concomitant]
     Dosage: 2 MG, QD
     Route: 048
     Dates: start: 200607
  3. FLUNITRAZEPAM [Concomitant]
     Active Substance: FLUNITRAZEPAM
     Indication: INSOMNIA
     Dosage: 2 MG 6-SEPT-2006-CONT;
     Route: 048
     Dates: start: 20060623, end: 20060905
  4. ZOPICLONE [Concomitant]
     Active Substance: ZOPICLONE
     Indication: INSOMNIA
     Dosage: 7.5 MG, UNK
     Route: 048
     Dates: start: 20060831
  5. OLANZAPINE. [Concomitant]
     Active Substance: OLANZAPINE
     Indication: SCHIZOPHRENIA
     Dosage: INITIAL DOSE 20MG, DECR TO 15MG ON 3-AUG-06, DECR TO 10MG ON 17-AUG-06, INCR TO 20 MG ON 08-SEP-2006
     Route: 048
     Dates: start: 20051019
  6. LEXOTAN [Concomitant]
     Active Substance: BROMAZEPAM
     Route: 048
     Dates: start: 20060825, end: 20060906
  7. ZYPREXA [Concomitant]
     Active Substance: OLANZAPINE
     Dosage: 20 MG, QD
     Route: 048
     Dates: start: 20060908
  8. ABILIFY [Suspect]
     Active Substance: ARIPIPRAZOLE
     Dosage: 12 MG, QD
     Route: 048
     Dates: start: 20060803, end: 20060816
  9. ABILIFY [Suspect]
     Active Substance: ARIPIPRAZOLE
     Dosage: 24 MG, QD
     Route: 048
     Dates: start: 20060831, end: 20060905
  10. ZYPREXA [Concomitant]
     Active Substance: OLANZAPINE
     Dosage: 15 MG, QD
     Route: 048
     Dates: start: 20060803, end: 20060816
  11. AMOBAN [Concomitant]
     Active Substance: ZOPICLONE
     Dosage: 7.5 MG, QD
     Route: 048
     Dates: start: 20060831
  12. ABILIFY [Suspect]
     Active Substance: ARIPIPRAZOLE
     Dosage: 6 MG, QD
     Route: 048
     Dates: start: 20060720, end: 20060802
  13. ABILIFY [Suspect]
     Active Substance: ARIPIPRAZOLE
     Dosage: 18 MG, QD
     Route: 048
     Dates: start: 20060817, end: 20060830
  14. ABILIFY [Suspect]
     Active Substance: ARIPIPRAZOLE
     Dosage: 12 MG, QD
     Route: 048
     Dates: start: 20060906, end: 20060908
  15. ROHYPNOL [Concomitant]
     Active Substance: FLUNITRAZEPAM
     Dosage: 2 MG, UNK
     Route: 048
     Dates: start: 20060906
  16. ZYPREXA [Concomitant]
     Active Substance: OLANZAPINE
     Dosage: 20 MG, QD
     Route: 048
     Dates: start: 20051019, end: 20060802
  17. ARTANE [Concomitant]
     Active Substance: TRIHEXYPHENIDYL HYDROCHLORIDE
     Dosage: 2 MG, TID
     Route: 048
     Dates: start: 20060216
  18. ZYPREXA [Concomitant]
     Active Substance: OLANZAPINE
     Dosage: 10 MG, QD
     Route: 048
     Dates: start: 20060906, end: 20060907
  19. ZYPREXA [Concomitant]
     Active Substance: OLANZAPINE
     Dosage: 10 MG, QD
     Route: 048
     Dates: start: 20060817, end: 20060831

REACTIONS (1)
  - Mania [Recovering/Resolving]

NARRATIVE: CASE EVENT DATE: 200609
